FAERS Safety Report 6312487-8 (Version None)
Quarter: 2009Q3

REPORT INFORMATION
  Report Type: 
  Country: None (occurrence: None)
  Receive Date: 20090813
  Receipt Date: 20090804
  Transmission Date: 20100115
  Serious: Yes (Hospitalization)
  Sender: FDA-Public Use
  Company Number: 2009008507

PATIENT
  Age: 75 Year
  Sex: Female
  Weight: 58.9676 kg

DRUGS (1)
  1. TREANDA [Suspect]
     Indication: CHRONIC LYMPHOCYTIC LEUKAEMIA
     Dosage: 170 MG, ONE DOSE EVERY 28 DAYS, DAY 1 AND DAY 2, INTRAVENOUS
     Route: 042
     Dates: start: 20090501, end: 20090709

REACTIONS (1)
  - PNEUMONITIS [None]
